FAERS Safety Report 7016061-X (Version None)
Quarter: 2010Q3

REPORT INFORMATION
  Report Type: 
  Country: None (occurrence: None)
  Receive Date: 20100927
  Receipt Date: 20100615
  Transmission Date: 20110219
  Serious: No
  Sender: FDA-Public Use
  Company Number: US-ASTRAZENECA-2010SE27925

PATIENT
  Sex: Female
  Weight: 67.1 kg

DRUGS (8)
  1. ARIMIDEX [Suspect]
     Indication: BREAST CANCER
     Route: 048
     Dates: start: 20071201
  2. SYNTHROID [Concomitant]
     Indication: HYPOTHYROIDISM
  3. CLONAZEPAM [Concomitant]
     Indication: ANXIETY
  4. CLONAZEPAM [Concomitant]
     Indication: DEPRESSION
  5. SERTRALINE HYDROCHLORIDE [Concomitant]
     Indication: ANXIETY
  6. SERTRALINE HYDROCHLORIDE [Concomitant]
     Indication: DEPRESSION
  7. CALTRATE [Concomitant]
     Indication: PROPHYLAXIS
  8. IRON [Concomitant]
     Indication: ANAEMIA

REACTIONS (3)
  - ANAEMIA [None]
  - ARTHRALGIA [None]
  - SWELLING [None]
